FAERS Safety Report 10819901 (Version 1)
Quarter: 2015Q1

REPORT INFORMATION
  Report Type: Report from Study
  Country: US (occurrence: None)
  Receive Date: 20150213
  Receipt Date: 20150213
  Transmission Date: 20150721
  Serious: Yes (Hospitalization)
  Sender: FDA-Public Use
  Company Number: 2015BI013834

PATIENT
  Age: 67 Year
  Sex: Female

DRUGS (15)
  1. AMLODIPINE [Concomitant]
     Active Substance: AMLODIPINE BESYLATE
  2. PREMARIN [Concomitant]
     Active Substance: ESTROGENS, CONJUGATED
  3. CLONAZEPAM. [Concomitant]
     Active Substance: CLONAZEPAM
  4. TYSABRI [Suspect]
     Active Substance: NATALIZUMAB
     Indication: MULTIPLE SCLEROSIS
     Route: 042
     Dates: start: 20090818
  5. ASPIRIN. [Concomitant]
     Active Substance: ASPIRIN
  6. PICATO GEL [Concomitant]
     Active Substance: INGENOL MEBUTATE
  7. RAMIPRIL. [Concomitant]
     Active Substance: RAMIPRIL
  8. METOPROLOL [Concomitant]
     Active Substance: METOPROLOL
  9. LASIX [Concomitant]
     Active Substance: FUROSEMIDE
  10. VESICARE [Concomitant]
     Active Substance: SOLIFENACIN SUCCINATE
  11. CALCIUM CARBONATE. [Concomitant]
     Active Substance: CALCIUM CARBONATE
  12. SOLU-MEDROL [Concomitant]
     Active Substance: METHYLPREDNISOLONE SODIUM SUCCINATE
  13. ZOLOFT [Concomitant]
     Active Substance: SERTRALINE HYDROCHLORIDE
  14. AVONEX [Concomitant]
     Active Substance: INTERFERON BETA-1A
  15. LEVOTHYROXINE [Concomitant]
     Active Substance: LEVOTHYROXINE

REACTIONS (8)
  - Fluid overload [None]
  - Gastroenteritis [None]
  - Animal scratch [None]
  - Hypophosphataemia [None]
  - Haematocrit decreased [None]
  - Fatigue [None]
  - Hypokalaemia [None]
  - Cellulitis [None]

NARRATIVE: CASE EVENT DATE: 20140920
